FAERS Safety Report 21480307 (Version 2)
Quarter: 2023Q1

REPORT INFORMATION
  Report Type: Report from Study
  Country: US (occurrence: US)
  Receive Date: 20221019
  Receipt Date: 20230202
  Transmission Date: 20230418
  Serious: No
  Sender: FDA-Public Use
  Company Number: US-ABBVIE-4162756

PATIENT
  Age: 58 Year
  Sex: Male

DRUGS (1)
  1. RINVOQ [Suspect]
     Active Substance: UPADACITINIB
     Indication: Rheumatoid arthritis
     Route: 048
     Dates: start: 20220921

REACTIONS (3)
  - Acne [Recovered/Resolved with Sequelae]
  - Dizziness [Unknown]
  - Seborrhoea [Unknown]

NARRATIVE: CASE EVENT DATE: 20221001
